FAERS Safety Report 22531309 (Version 1)
Quarter: 2023Q2

REPORT INFORMATION
  Report Type: Spontaneous
  Country: US (occurrence: None)
  Receive Date: 20230606
  Receipt Date: 20230606
  Transmission Date: 20230721
  Serious: Yes (Disabling)
  Sender: FDA-Public Use
  Company Number: None

PATIENT
  Age: 64 Year
  Sex: Female
  Weight: 73.8 kg

DRUGS (1)
  1. OZEMPIC [Suspect]
     Active Substance: SEMAGLUTIDE
     Indication: Diabetes mellitus
     Dosage: OTHER QUANTITY : 1 INJECTION(S);?OTHER FREQUENCY : ONCE A WEEK;?OTHER ROUTE : INJECTION;?
     Route: 050
     Dates: start: 20230327, end: 20230418

REACTIONS (5)
  - Abdominal pain upper [None]
  - Nausea [None]
  - Headache [None]
  - Constipation [None]
  - Hyperhidrosis [None]

NARRATIVE: CASE EVENT DATE: 20230329
